FAERS Safety Report 15397152 (Version 1)
Quarter: 2018Q3

REPORT INFORMATION
  Report Type: Other
  Country: US (occurrence: US)
  Receive Date: 20180918
  Receipt Date: 20180918
  Transmission Date: 20181010
  Serious: No
  Sender: FDA-Public Use
  Company Number: US-LEADIANT BIOSCIENCES INC-2018STPI000377

PATIENT
  Age: 29 Year
  Sex: Female

DRUGS (7)
  1. DEXAMETHASONE. [Concomitant]
     Active Substance: DEXAMETHASONE
  2. VIMPAT [Concomitant]
     Active Substance: LACOSAMIDE
  3. CLONAZEPAM. [Concomitant]
     Active Substance: CLONAZEPAM
  4. BRIVIACT [Concomitant]
     Active Substance: BRIVARACETAM
  5. ONDANSETRON [Concomitant]
     Active Substance: ONDANSETRON
  6. MATULANE [Suspect]
     Active Substance: PROCARBAZINE HYDROCHLORIDE
     Indication: BRAIN NEOPLASM MALIGNANT
     Dosage: 100 MG, 2 CAPSULES DAILEY DAYS 8 TO 20
     Route: 048
     Dates: start: 20180524
  7. ZONISAMIDE. [Concomitant]
     Active Substance: ZONISAMIDE

REACTIONS (4)
  - Nausea [Not Recovered/Not Resolved]
  - Fatigue [Not Recovered/Not Resolved]
  - Dizziness [Not Recovered/Not Resolved]
  - Diarrhoea [Not Recovered/Not Resolved]

NARRATIVE: CASE EVENT DATE: 201805
